FAERS Safety Report 21161367 (Version 2)
Quarter: 2022Q3

REPORT INFORMATION
  Report Type: Report from Study
  Country: IT (occurrence: IT)
  Receive Date: 20220802
  Receipt Date: 20220804
  Transmission Date: 20221027
  Serious: Yes (Death)
  Sender: FDA-Public Use
  Company Number: IT-CELLTRION HEALTHCARE HUNGARY KFT-2022IT011695

PATIENT

DRUGS (16)
  1. VINCRISTINE SULFATE [Suspect]
     Active Substance: VINCRISTINE SULFATE
     Indication: Diffuse large B-cell lymphoma
     Dosage: 1.4 MG/M2, CYCLIC UP TO A MAXIMAL DOSE OF 2 MG (FIRST THREE CYCLES OF THERAPY WITH R-COMP-DI; 1-DAY
     Route: 042
  2. VINCRISTINE SULFATE [Suspect]
     Active Substance: VINCRISTINE SULFATE
     Dosage: STANDARD DOSAGE, AT A 3-WEEK INTERVAL (CYCLE 4, TO RECEIVE R-COMP WHICH CONSISTED OF 1-DAY OUTPATIEN
     Route: 042
  3. RITUXIMAB [Suspect]
     Active Substance: RITUXIMAB
     Indication: Diffuse large B-cell lymphoma
     Dosage: 375 MG/M2, CYCLIC (FIRST THREE CYCLES OF THERAPY WITH R-COMP-DI; 1-DAY OUTPATIENT INTRAVENOUS INFUSI
     Route: 042
  4. RITUXIMAB [Suspect]
     Active Substance: RITUXIMAB
     Dosage: STANDARD DOSAGE, AT A 3-WEEK INTERVAL (CYCLE 4, TO RECEIVED R-COMP WHICH CONSISTED OF 1-DAY OUTPATIE
  5. CYCLOPHOSPHAMIDE [Suspect]
     Active Substance: CYCLOPHOSPHAMIDE
     Indication: Diffuse large B-cell lymphoma
     Dosage: 750 MG/M2, CYCLIC (FIRST THREE CYCLES OF THERAPY WITH R-COMP-DI; 1-DAY OUTPATIENT INTRAVENOUS INFUSI
     Route: 042
  6. CYCLOPHOSPHAMIDE [Suspect]
     Active Substance: CYCLOPHOSPHAMIDE
     Dosage: STANDARD DOSAGE, AT A 3-WEEK INTERVAL (CYCLE 4, TO RECEIVE R-COMP WHICH CONSISTED OF 1-DAY OUTPATIEN
     Route: 042
  7. PREDNISONE [Suspect]
     Active Substance: PREDNISONE
     Indication: Diffuse large B-cell lymphoma
     Dosage: 40 MG/M2, CYCLIC PER DAW FOR 5 DAYS, AT A 3-WEEK INTERVAL (FIRST THREE CYCLES OF THERAPY WITH R-COMP
     Route: 042
  8. PREDNISONE [Suspect]
     Active Substance: PREDNISONE
     Dosage: STANDARD DOSAGE, AT A 3-WEEK INTERVAL (CYCLE 4, TO RECEIVE R-COMP WHICH CONSISTED OF 1-DAY OUTPATIEN
     Route: 042
  9. DOXORUBICIN [Suspect]
     Active Substance: DOXORUBICIN
     Indication: Diffuse large B-cell lymphoma
     Dosage: ESCALATED DOSE OF 70 MG/M2 (FIRST THREE CYCLES OF THERAPY WITH R-COMP-DI; 1-DAY OUTPATIENT INTRAVENO
     Route: 042
  10. DOXORUBICIN [Suspect]
     Active Substance: DOXORUBICIN
     Dosage: DE-ESCALATED DOSE OF 50MG/M2, AT A 3-WEEK INTERVAL (CYCLE 4, TO RECEIVE R-COMP WHICH CONSISTED OF 1-
     Route: 042
  11. ACYCLOVIR [Concomitant]
     Active Substance: ACYCLOVIR
     Indication: Supportive care
     Dosage: 800 MILLIGRAM, DAILY FROM THE START OF CHEMOTHERAPY
     Route: 048
  12. METHYLPREDNISOLONE [Concomitant]
     Active Substance: METHYLPREDNISOLONE
     Indication: Supportive care
     Dosage: ROUTINELY RECEIVED AT 200 MILLIGRAM
     Route: 042
  13. SULFAMETHOXAZOLE\TRIMETHOPRIM [Concomitant]
     Active Substance: SULFAMETHOXAZOLE\TRIMETHOPRIM
     Indication: Supportive care
     Dosage: 960(160+800) MILLIGRAM, EVERY 12H FOR TWICE A WEEK
     Route: 048
  14. LIPEGFILGRASTIM [Concomitant]
     Active Substance: LIPEGFILGRASTIM
     Indication: Supportive care
     Dosage: ADMINISTERED SUBCUTANEOUSLY, ON DAY 3 OF EVERY 3 WEEK CYCLE
     Route: 058
  15. DIPHENHYDRAMINE [Concomitant]
     Active Substance: DIPHENHYDRAMINE
     Indication: Supportive care
     Dosage: ROUTINELY RECEIVED AT 50 MILLIGRAM
     Route: 042
  16. FEBUXOSTAT [Concomitant]
     Active Substance: FEBUXOSTAT
     Indication: Supportive care
     Dosage: ROUTINELY RECEIVED AT 80 MILLIGRAM, (PLUS HYPER-HYDRATION) IN EVERY COURSE
     Route: 048

REACTIONS (3)
  - COVID-19 [Fatal]
  - Pneumonitis [Fatal]
  - Alveolitis [Fatal]
